FAERS Safety Report 15919464 (Version 1)
Quarter: 2019Q1

REPORT INFORMATION
  Report Type: Spontaneous
  Country: US (occurrence: US)
  Receive Date: 20190205
  Receipt Date: 20190205
  Transmission Date: 20190417
  Serious: No
  Sender: FDA-Public Use
  Company Number: US-009507513-1902USA001454

PATIENT
  Sex: Male

DRUGS (2)
  1. NASONEX [Suspect]
     Active Substance: MOMETASONE FUROATE
     Dosage: UNK
  2. MOMETASONE FUROATE. [Suspect]
     Active Substance: MOMETASONE FUROATE

REACTIONS (1)
  - Adverse event [Unknown]
